FAERS Safety Report 19921644 (Version 1)
Quarter: 2021Q4

REPORT INFORMATION
  Report Type: Spontaneous
  Country: CN (occurrence: CN)
  Receive Date: 20211005
  Receipt Date: 20211005
  Transmission Date: 20220303
  Serious: Yes (Other)
  Sender: FDA-Public Use
  Company Number: CN-PFIZER INC-202101259921

PATIENT
  Age: 48 Year
  Sex: Male

DRUGS (1)
  1. ZITHROMAX [Suspect]
     Active Substance: AZITHROMYCIN DIHYDRATE
     Dosage: 0.5 G, 1X/DAY
     Route: 041
     Dates: start: 20210907, end: 20210908

REACTIONS (3)
  - Rash [Unknown]
  - Pruritus [Unknown]
  - Drug eruption [Unknown]

NARRATIVE: CASE EVENT DATE: 20210907
